FAERS Safety Report 8612526-5 (Version None)
Quarter: 2012Q3

REPORT INFORMATION
  Report Type: 
  Country: None (occurrence: None)
  Receive Date: 20120822
  Receipt Date: 20111004
  Transmission Date: 20120928
  Serious: No
  Sender: FDA-Public Use
  Company Number: US-ASTRAZENECA-2011SE59682

PATIENT
  Age: 57 Year
  Sex: Male

DRUGS (1)
  1. SYMBICORT [Suspect]
     Dosage: 160 MCG/ 4.5 MCG, 1 INHALATION TWICE A DAY
     Route: 055

REACTIONS (2)
  - TREMOR [None]
  - OFF LABEL USE [None]
